FAERS Safety Report 24882718 (Version 1)
Quarter: 2025Q1

REPORT INFORMATION
  Report Type: Spontaneous
  Country: US (occurrence: None)
  Receive Date: 20250123
  Receipt Date: 20250123
  Transmission Date: 20250409
  Serious: Yes (Disabling)
  Sender: FDA-CTU
  Company Number: None

PATIENT
  Age: 26 Year
  Sex: Male
  Weight: 75 kg

DRUGS (3)
  1. ESCITALOPRAM OXALATE [Suspect]
     Active Substance: ESCITALOPRAM OXALATE
     Indication: Depression
     Dosage: OTHER QUANTITY : 1 TABLET(S);?FREQUENCY : DAILY;?
     Route: 048
     Dates: start: 20170522, end: 20180201
  2. TADALAFIL [Concomitant]
     Active Substance: TADALAFIL
  3. TESTOSTERONE UNDECANOATE [Concomitant]
     Active Substance: TESTOSTERONE UNDECANOATE

REACTIONS (10)
  - Erectile dysfunction [None]
  - Therapy cessation [None]
  - Genital hypoaesthesia [None]
  - Libido decreased [None]
  - Ejaculation failure [None]
  - Penile curvature [None]
  - Blood testosterone decreased [None]
  - Anhedonia [None]
  - Insomnia [None]
  - Sexual dysfunction [None]

NARRATIVE: CASE EVENT DATE: 20180201
